FAERS Safety Report 15834496 (Version 1)
Quarter: 2019Q1

REPORT INFORMATION
  Report Type: Report from Study
  Country: JP (occurrence: JP)
  Receive Date: 20190116
  Receipt Date: 20190116
  Transmission Date: 20190417
  Serious: Yes (Hospitalization, Other)
  Sender: FDA-Public Use
  Company Number: JP-BRISTOL-MYERS SQUIBB COMPANY-BMS-2018-107889

PATIENT
  Age: 68 Year
  Sex: Male
  Weight: 50.9 kg

DRUGS (20)
  1. EQUMET [Concomitant]
     Active Substance: METFORMIN HYDROCHLORIDE\VILDAGLIPTIN
     Indication: TYPE 2 DIABETES MELLITUS
     Dosage: 550 MG, Q12H
     Route: 048
     Dates: start: 20181027
  2. LOXOPROFEN [Concomitant]
     Active Substance: LOXOPROFEN
     Indication: CANCER PAIN
     Dosage: UNK
     Route: 065
     Dates: start: 20081101
  3. BEVACIZUMAB. [Suspect]
     Active Substance: BEVACIZUMAB
     Indication: LUNG NEOPLASM MALIGNANT
     Dosage: 15 MG/KG, Q3WK
     Route: 041
     Dates: start: 20181102, end: 20181127
  4. CARBOCISTEINE [Concomitant]
     Active Substance: CARBOCYSTEINE
     Indication: ASTHMA
     Dosage: 500 MG, Q12H
     Route: 048
     Dates: start: 20180928
  5. NOVOLIN R [Concomitant]
     Active Substance: INSULIN HUMAN
     Indication: PRODUCT USED FOR UNKNOWN INDICATION
     Dosage: 1 DF, PRN
     Route: 058
     Dates: start: 20181102
  6. LOXOPROFEN [Concomitant]
     Active Substance: LOXOPROFEN
     Indication: PRODUCT USED FOR UNKNOWN INDICATION
     Dosage: 60 MG, Q8H
     Route: 048
     Dates: start: 20181101
  7. OXINORM                            /00045603/ [Concomitant]
     Active Substance: OXYCODONE HYDROCHLORIDE
     Indication: CANCER PAIN
     Dosage: 2.5 MG, PRN
     Route: 048
     Dates: start: 20181010
  8. BILANOA [Concomitant]
     Active Substance: BILASTINE
     Indication: ECZEMA
     Dosage: 20 MG, QD
     Route: 048
     Dates: start: 20181109
  9. ADOAIR [Concomitant]
     Active Substance: FLUTICASONE PROPIONATE\SALMETEROL XINAFOATE
     Indication: CHRONIC OBSTRUCTIVE PULMONARY DISEASE
     Dosage: 300 ?G, Q12H
     Route: 055
     Dates: start: 20181117
  10. CARBOPLATIN. [Suspect]
     Active Substance: CARBOPLATIN
     Indication: LUNG NEOPLASM MALIGNANT
     Dosage: 1 DF, Q3WK
     Route: 041
     Dates: start: 20181102
  11. OXYCONTIN TR [Concomitant]
     Indication: CANCER PAIN
     Dosage: 5 MG, Q12H
     Route: 048
     Dates: start: 20181010
  12. PACLITAXEL. [Suspect]
     Active Substance: PACLITAXEL
     Indication: LUNG NEOPLASM MALIGNANT
     Dosage: 200 MG/M2, Q3WK
     Route: 041
     Dates: start: 20181102
  13. MAGNESIUM OXIDE. [Concomitant]
     Active Substance: MAGNESIUM OXIDE
     Indication: CONSTIPATION
     Dosage: 330 MG, Q8H
     Route: 048
     Dates: start: 20181012
  14. DERMOSOL                           /00008503/ [Concomitant]
     Indication: ECZEMA
     Dosage: UNK
     Route: 003
     Dates: start: 20181122
  15. SYMPROIC [Concomitant]
     Active Substance: NALDEMEDINE
     Indication: CONSTIPATION
     Dosage: 0.2 MG, EVERYDAY
     Route: 048
     Dates: start: 20181011
  16. TAKECAB [Concomitant]
     Active Substance: VONOPRAZAN FUMURATE
     Indication: GASTROOESOPHAGEAL REFLUX DISEASE
     Dosage: 20 MG, EVERYDAY
     Route: 048
     Dates: start: 20181002
  17. NIVOLUMAB [Suspect]
     Active Substance: NIVOLUMAB
     Indication: NON-SMALL CELL LUNG CANCER
     Dosage: 360MG/BODY, Q3W
     Route: 041
     Dates: start: 20181102, end: 20181127
  18. TALION                             /01587402/ [Concomitant]
     Active Substance: BEPOTASTINE BESILATE
     Indication: ECZEMA
     Dosage: 20 MG, QD
     Route: 048
     Dates: start: 20181122
  19. NOVOLIN R [Concomitant]
     Active Substance: INSULIN HUMAN
     Indication: TYPE 2 DIABETES MELLITUS
     Dosage: UNK
     Route: 065
     Dates: start: 20181002
  20. AUGMENTIN [Concomitant]
     Active Substance: AMOXICILLIN\CLAVULANATE POTASSIUM
     Indication: PNEUMONIA
     Dosage: 375 MG, Q8H
     Route: 048
     Dates: start: 20181217

REACTIONS (2)
  - Pneumonia [Recovered/Resolved]
  - Gastrointestinal haemorrhage [Recovered/Resolved]

NARRATIVE: CASE EVENT DATE: 20181107
